FAERS Safety Report 20718435 (Version 1)
Quarter: 2022Q2

REPORT INFORMATION
  Report Type: Spontaneous
  Country: SE (occurrence: SE)
  Receive Date: 20220418
  Receipt Date: 20220418
  Transmission Date: 20220720
  Serious: Yes (Death, Life-Threatening, Other)
  Sender: FDA-Public Use
  Company Number: None

PATIENT
  Age: 76 Year
  Sex: Male

DRUGS (9)
  1. JARDIANCE [Suspect]
     Active Substance: EMPAGLIFLOZIN
     Indication: Type 2 diabetes mellitus
     Route: 048
     Dates: start: 20210826, end: 20211021
  2. METFORMIN HYDROCHLORIDE [Concomitant]
     Active Substance: METFORMIN HYDROCHLORIDE
     Indication: Product used for unknown indication
     Dosage: 500 MG 1X3
  3. Simvastatin Krka 20 mg Filmdragerad tablett [Concomitant]
     Indication: Product used for unknown indication
  4. Enalapril Krka 20 mg Tablett [Concomitant]
     Indication: Product used for unknown indication
  5. Calcichew-D3 Citron 500 mg/800 IE Tuggtablett [Concomitant]
     Indication: Product used for unknown indication
     Dosage: 500 MG/800 IE
  6. CYANOCOBALAMIN [Concomitant]
     Active Substance: CYANOCOBALAMIN
     Indication: Product used for unknown indication
  7. ATARAX [Concomitant]
     Active Substance: HYDROXYZINE HYDROCHLORIDE
     Indication: Product used for unknown indication
     Route: 048
  8. Duroferon 100 mg Fe2+ Depottablett [Concomitant]
     Indication: Product used for unknown indication
     Dosage: 100 MG FE2+ 1X2
  9. Finasterid Aurobindo 5 mg Filmdragerad tablett [Concomitant]
     Indication: Product used for unknown indication

REACTIONS (1)
  - Fournier^s gangrene [Fatal]

NARRATIVE: CASE EVENT DATE: 20211019
